FAERS Safety Report 9745284 (Version 2)
Quarter: 2014Q2

REPORT INFORMATION
  Report Type: Report from Study
  Country: US (occurrence: US)
  Receive Date: 20131211
  Receipt Date: 20140506
  Transmission Date: 20141212
  Serious: Yes (Hospitalization)
  Sender: FDA-Public Use
  Company Number: US-VERTEX PHARMACEUTICALS INC-2013-011638

PATIENT
  Age: 21 Year
  Sex: Male

DRUGS (1)
  1. VX-770 [Suspect]
     Indication: CYSTIC FIBROSIS
     Dosage: ONE DOSE MONDAY AND FRIDAY
     Route: 048
     Dates: start: 20130607

REACTIONS (1)
  - Fungal infection [Recovering/Resolving]
